FAERS Safety Report 17520873 (Version 3)
Quarter: 2020Q1

REPORT INFORMATION
  Report Type: Report from Study
  Country: DE (occurrence: DE)
  Receive Date: 20200310
  Receipt Date: 20200323
  Transmission Date: 20200409
  Serious: Yes (Life-Threatening, Hospitalization)
  Sender: FDA-Public Use
  Company Number: NVSC2020DE067673

PATIENT
  Sex: Female
  Weight: 51 kg

DRUGS (2)
  1. KISQALI [Suspect]
     Active Substance: RIBOCICLIB
     Indication: BREAST CANCER METASTATIC
     Dosage: 600 MG, QD
     Route: 048
     Dates: start: 20191122, end: 20200204
  2. LETROZOLE. [Suspect]
     Active Substance: LETROZOLE
     Indication: BREAST CANCER METASTATIC
     Dosage: 2.5 MG, QD
     Route: 048
     Dates: start: 20191122, end: 20200204

REACTIONS (4)
  - C-reactive protein increased [Unknown]
  - Abdominal discomfort [Recovered/Resolved]
  - Abdominal hernia infection [Recovered/Resolved]
  - Femoral hernia incarcerated [Recovered/Resolved]

NARRATIVE: CASE EVENT DATE: 20200205
